FAERS Safety Report 23766995 (Version 1)
Quarter: 2024Q2

REPORT INFORMATION
  Report Type: Spontaneous
  Country: US (occurrence: None)
  Receive Date: 20240419
  Receipt Date: 20240419
  Transmission Date: 20240715
  Serious: Yes (Other)
  Sender: FDA-Public Use
  Company Number: None

PATIENT
  Age: 35 Year
  Sex: Female

DRUGS (3)
  1. BOTOX [Suspect]
     Active Substance: ONABOTULINUMTOXINA
     Dosage: OTHER QUANTITY : 54 UNITS;?OTHER ROUTE : INJECTIONS;?
     Route: 050
     Dates: start: 20240206
  2. OZEMPIC [Concomitant]
     Active Substance: SEMAGLUTIDE
  3. METFORMIN [Concomitant]
     Active Substance: METFORMIN HYDROCHLORIDE

REACTIONS (10)
  - Eyelid ptosis [None]
  - Fatigue [None]
  - Vision blurred [None]
  - Diplopia [None]
  - Head deformity [None]
  - Dysphagia [None]
  - Mastication disorder [None]
  - Dizziness [None]
  - Vertigo [None]
  - Decreased activity [None]

NARRATIVE: CASE EVENT DATE: 20240219
